FAERS Safety Report 24772538 (Version 1)
Quarter: 2024Q4

REPORT INFORMATION
  Report Type: Spontaneous
  Country: PT (occurrence: PT)
  Receive Date: 20241224
  Receipt Date: 20241224
  Transmission Date: 20250114
  Serious: Yes (Death, Hospitalization, Other)
  Sender: PANACEA BIOTEC PHARMA LIMITED
  Company Number: PT-PBT-010004

PATIENT
  Age: 29 Year
  Sex: Male

DRUGS (4)
  1. TACROLIMUS [Suspect]
     Active Substance: TACROLIMUS
     Indication: Prophylaxis against graft versus host disease
     Dosage: D-2
     Route: 065
     Dates: start: 2022
  2. MYCOPHENOLATE MOFETIL [Suspect]
     Active Substance: MYCOPHENOLATE MOFETIL
     Indication: Prophylaxis against graft versus host disease
     Dosage: D-0 TO D+56
     Route: 065
     Dates: start: 2022
  3. THYMOCYTE IMMUNE GLOBULIN NOS [Concomitant]
     Active Substance: THYMOCYTE IMMUNE GLOBULIN NOS
     Indication: Prophylaxis against graft versus host disease
     Dosage: DAY (D)-3 TO D-1
     Route: 065
     Dates: start: 2022, end: 2022
  4. MYCOPHENOLATE MOFETIL [Suspect]
     Active Substance: MYCOPHENOLATE MOFETIL
     Indication: Prophylaxis against graft versus host disease
     Dosage: RESTARTED
     Route: 065

REACTIONS (10)
  - Chronic graft versus host disease [Fatal]
  - Septic shock [Fatal]
  - Hepatitis cholestatic [Unknown]
  - Venoocclusive liver disease [Unknown]
  - Acute graft versus host disease [Unknown]
  - Acute graft versus host disease in intestine [Unknown]
  - Acute graft versus host disease in liver [Unknown]
  - Hepatic encephalopathy [Unknown]
  - Disease progression [Unknown]
  - Product use in unapproved indication [Unknown]

NARRATIVE: CASE EVENT DATE: 20220101
